FAERS Safety Report 7805604-1 (Version None)
Quarter: 2011Q4

REPORT INFORMATION
  Report Type: 
  Country: None (occurrence: None)
  Receive Date: 20111010
  Receipt Date: 20110930
  Transmission Date: 20120403
  Serious: No
  Sender: FDA-Public Use
  Company Number: BE-ASTRAZENECA-2011SE57421

PATIENT
  Age: 555 Month
  Sex: Male
  Weight: 130 kg

DRUGS (1)
  1. SYMBICORT [Suspect]
     Route: 055

REACTIONS (1)
  - DYSPNOEA [None]
